FAERS Safety Report 6180294-5 (Version None)
Quarter: 2009Q2

REPORT INFORMATION
  Report Type: 
  Country: None (occurrence: None)
  Receive Date: 20090504
  Receipt Date: 20090504
  Transmission Date: 20091009
  Serious: Yes (Life-Threatening)
  Sender: FDA-Public Use
  Company Number: None

PATIENT
  Age: 75 Year
  Sex: Male

DRUGS (2)
  1. CIPROFLOXACIN [Suspect]
     Indication: UROSEPSIS
     Dosage: 400 MG ONCE IV
     Route: 042
     Dates: start: 20090228, end: 20090228
  2. ONDANSETRON [Suspect]
     Indication: NAUSEA
     Dosage: 4 MG ONCE IV
     Route: 042
     Dates: start: 20090228, end: 20090228

REACTIONS (5)
  - BLOOD POTASSIUM DECREASED [None]
  - CARDIO-RESPIRATORY ARREST [None]
  - CHILLS [None]
  - HYPERTENSION [None]
  - TORSADE DE POINTES [None]
